FAERS Safety Report 6186347-X (Version None)
Quarter: 2009Q2

REPORT INFORMATION
  Report Type: 
  Country: None (occurrence: None)
  Receive Date: 20090511
  Receipt Date: 20090419
  Transmission Date: 20091009
  Serious: Yes (Other)
  Sender: FDA-Public Use
  Company Number: US-PFIZER INC-2009194592

PATIENT
  Sex: Female
  Weight: 69.388 kg

DRUGS (2)
  1. CHANTIX [Suspect]
     Indication: SMOKING CESSATION THERAPY
     Dosage: UNK MG, UNK
     Dates: start: 20090403, end: 20090401
  2. PRAVASTATIN [Suspect]
     Indication: HYPERTENSION
     Dosage: UNK

REACTIONS (3)
  - CIRCUMSTANCE OR INFORMATION CAPABLE OF LEADING TO MEDICATION ERROR [None]
  - HAEMORRHAGE [None]
  - RECTAL HAEMORRHAGE [None]
